FAERS Safety Report 15476017 (Version 1)
Quarter: 2018Q4

REPORT INFORMATION
  Report Type: Spontaneous
  Country: CA (occurrence: CA)
  Receive Date: 20181009
  Receipt Date: 20181009
  Transmission Date: 20190205
  Serious: Yes (Hospitalization)
  Sender: FDA-Public Use
  Company Number: PHHY2018CA119274

PATIENT
  Age: 1 Month
  Sex: Female
  Weight: 4 kg

DRUGS (1)
  1. TIMOLOL MALEATE EX [Suspect]
     Active Substance: TIMOLOL MALEATE
     Indication: HAEMANGIOMA
     Dosage: 2 DF, QD
     Route: 061

REACTIONS (1)
  - Rash [Recovering/Resolving]
